FAERS Safety Report 16357957 (Version 3)
Quarter: 2019Q4

REPORT INFORMATION
  Report Type: Spontaneous
  Country: US (occurrence: US)
  Receive Date: 20190527
  Receipt Date: 20191014
  Transmission Date: 20200122
  Serious: Yes (Hospitalization, Other)
  Sender: FDA-Public Use
  Company Number: US-PFIZER INC-2019219385

PATIENT
  Age: 62 Year
  Sex: Female
  Weight: 96.6 kg

DRUGS (7)
  1. LYRICA [Suspect]
     Active Substance: PREGABALIN
     Indication: NEUROPATHY PERIPHERAL
     Dosage: 150 MG, 2X/DAY
     Dates: start: 201806
  2. APRISO [Concomitant]
     Active Substance: MESALAMINE
     Dosage: 0.375 MG, UNK
     Dates: start: 201905, end: 20190601
  3. OLMESARTAN MEDOXOMIL. [Concomitant]
     Active Substance: OLMESARTAN MEDOXOMIL
     Dosage: UNK
     Dates: start: 201901, end: 20190601
  4. LINZESS [Concomitant]
     Active Substance: LINACLOTIDE
     Dosage: 288 MG, UNK
     Dates: start: 201904
  5. OMEPRAZOLE. [Concomitant]
     Active Substance: OMEPRAZOLE
     Dosage: 400 MG, UNK
     Dates: start: 201801
  6. LEVOTHYROXINE. [Concomitant]
     Active Substance: LEVOTHYROXINE
     Dosage: 0.075 MG, UNK
     Dates: start: 201601
  7. HYDROCHLOROTHIAZIDE. [Concomitant]
     Active Substance: HYDROCHLOROTHIAZIDE
     Dosage: 20 MG, UNK
     Dates: start: 201901

REACTIONS (2)
  - Mental impairment [Not Recovered/Not Resolved]
  - Large intestinal ulcer [Recovered/Resolved]
